FAERS Safety Report 12279078 (Version 1)
Quarter: 2016Q2

REPORT INFORMATION
  Report Type: Spontaneous
  Country: US (occurrence: US)
  Receive Date: 20160418
  Receipt Date: 20160418
  Transmission Date: 20160815
  Serious: Yes (Other)
  Sender: FDA-Public Use
  Company Number: PHHY2016US050495

PATIENT
  Age: 64 Year

DRUGS (3)
  1. ONDANSETRON [Concomitant]
     Active Substance: ONDANSETRON
     Indication: PROPHYLAXIS
     Dosage: 8 MG (30 MINUTES PRIOR TO THE CERITINIB DOSE)
     Route: 048
  2. LDK378 [Suspect]
     Active Substance: CERITINIB
     Indication: NON-SMALL CELL LUNG CANCER
     Dosage: 750 MG, QD
     Route: 048
     Dates: start: 201311, end: 201403
  3. DIPHENOXYLATE/ATROPINE [Concomitant]
     Active Substance: ATROPINE\DIPHENOXYLATE
     Indication: PROPHYLAXIS
     Dosage: 2.5 MG (30 MINUTES PRIOR TO THE CERITINIB DOSE)
     Route: 048

REACTIONS (1)
  - Second primary malignancy [Unknown]
